FAERS Safety Report 24860430 (Version 1)
Quarter: 2025Q1

REPORT INFORMATION
  Report Type: Spontaneous
  Country: US (occurrence: US)
  Receive Date: 20250120
  Receipt Date: 20250120
  Transmission Date: 20250409
  Serious: Yes (Other)
  Sender: STRIDES
  Company Number: US-STRIDES ARCOLAB LIMITED-2024SP001341

PATIENT
  Sex: Female

DRUGS (1)
  1. METHOTREXATE [Suspect]
     Active Substance: METHOTREXATE
     Indication: Rheumatoid arthritis
     Route: 065
     Dates: start: 201701, end: 201706

REACTIONS (6)
  - Weight decreased [Unknown]
  - Oral mucosal blistering [Unknown]
  - Adverse drug reaction [Unknown]
  - Rash pruritic [Unknown]
  - Swollen tongue [Unknown]
  - Alopecia [Unknown]

NARRATIVE: CASE EVENT DATE: 20170301
